FAERS Safety Report 8533221-7 (Version None)
Quarter: 2012Q3

REPORT INFORMATION
  Report Type: 
  Country: None (occurrence: None)
  Receive Date: 20120724
  Receipt Date: 20120718
  Transmission Date: 20120928
  Serious: Yes (Other)
  Sender: FDA-Public Use
  Company Number: US-PFIZER INC-2012174239

PATIENT
  Sex: Female
  Weight: 63.492 kg

DRUGS (4)
  1. PRILOSEC [Suspect]
     Indication: GASTROOESOPHAGEAL REFLUX DISEASE
     Dosage: 20 MG, DAILY
     Dates: start: 20101001
  2. TYLENOL [Concomitant]
     Indication: NEUROPATHY PERIPHERAL
     Dosage: 500 MG, AS NEEDED
  3. LISINOPRIL [Concomitant]
     Indication: HYPERTENSION
     Dosage: 5 MG, DAILY
  4. TOVIAZ [Suspect]
     Indication: HYPERTONIC BLADDER
     Dosage: 4 MG, DAILY
     Dates: start: 20090101

REACTIONS (6)
  - DRY MOUTH [None]
  - DRY EYE [None]
  - UTERINE DISORDER [None]
  - HYPERTONIC BLADDER [None]
  - VISION BLURRED [None]
  - DRUG INEFFECTIVE [None]
